FAERS Safety Report 6616226-2 (Version None)
Quarter: 2010Q1

REPORT INFORMATION
  Report Type: 
  Country: None (occurrence: None)
  Receive Date: 20100305
  Receipt Date: 20100223
  Transmission Date: 20100710
  Serious: Yes (Other)
  Sender: FDA-Public Use
  Company Number: US-WATSON-2010-02122

PATIENT
  Sex: Female

DRUGS (1)
  1. CARISOPRODOL (WATSON LABORATORIES) [Suspect]
     Indication: MUSCLE RELAXANT THERAPY
     Dosage: 65 TABLETS, SINGLE
     Route: 048
     Dates: start: 20100223, end: 20100223

REACTIONS (4)
  - DEPRESSION [None]
  - INTENTIONAL OVERDOSE [None]
  - LOSS OF CONSCIOUSNESS [None]
  - SUICIDE ATTEMPT [None]
